FAERS Safety Report 25336125 (Version 3)
Quarter: 2025Q3

REPORT INFORMATION
  Report Type: Spontaneous
  Country: US (occurrence: US)
  Receive Date: 20250520
  Receipt Date: 20250710
  Transmission Date: 20251020
  Serious: No
  Sender: PFIZER
  Company Number: US-PFIZER INC-202500102495

PATIENT
  Age: 6 Year
  Sex: Male
  Weight: 24.49 kg

DRUGS (3)
  1. GENOTROPIN [Suspect]
     Active Substance: SOMATROPIN
     Indication: Blindness
     Dosage: 0.5MG EVERY NIGHT, ADMINISTERED IN LEG OR BUTT
  2. GENOTROPIN [Suspect]
     Active Substance: SOMATROPIN
     Indication: Glucocorticoid deficiency
  3. LEVOTHYROXINE [Concomitant]
     Active Substance: LEVOTHYROXINE
     Indication: Thyroid disorder
     Dosage: 50MCG LITTLE TABLET EVERY MORNING BY MOUTH
     Route: 048

REACTIONS (4)
  - Device power source issue [Unknown]
  - Expired device used [Unknown]
  - Device leakage [Unknown]
  - Off label use [Unknown]

NARRATIVE: CASE EVENT DATE: 20250514
